FAERS Safety Report 12812249 (Version 1)
Quarter: 2016Q4

REPORT INFORMATION
  Report Type: Spontaneous
  Country: US (occurrence: US)
  Receive Date: 20161005
  Receipt Date: 20161005
  Transmission Date: 20170207
  Serious: No
  Sender: FDA-Public Use
  Company Number: US-AMGEN-USASP2016087372

PATIENT
  Age: 69 Year
  Sex: Female

DRUGS (1)
  1. PROLIA [Suspect]
     Active Substance: DENOSUMAB
     Indication: PRODUCT USED FOR UNKNOWN INDICATION
     Dosage: UNK
     Route: 065

REACTIONS (8)
  - Headache [Unknown]
  - Ear pain [Unknown]
  - Mouth ulceration [Unknown]
  - Toothache [Unknown]
  - Urticaria [Unknown]
  - Chills [Unknown]
  - Dizziness [Unknown]
  - Pain in jaw [Unknown]
